FAERS Safety Report 24111183 (Version 1)
Quarter: 2024Q3

REPORT INFORMATION
  Report Type: Report from Study
  Country: US (occurrence: None)
  Receive Date: 20240718
  Receipt Date: 20240718
  Transmission Date: 20241016
  Serious: Yes (Hospitalization)
  Sender: ASTRAZENECA
  Company Number: 2020SE97935

PATIENT
  Age: 18427 Day
  Sex: Female
  Weight: 85.3 kg

DRUGS (12)
  1. METOPROLOL TARTRATE [Suspect]
     Active Substance: METOPROLOL TARTRATE
     Dates: start: 20200225
  2. TAGRISSO [Suspect]
     Active Substance: OSIMERTINIB
     Route: 048
  3. TAGRISSO [Suspect]
     Active Substance: OSIMERTINIB
     Route: 048
  4. DOCOFEC [Concomitant]
     Dates: start: 20200225
  5. NARCO [Concomitant]
     Dates: start: 20200225
  6. LORAZEPAM [Concomitant]
     Active Substance: LORAZEPAM
     Dates: start: 20200225
  7. OXYCODONE HYDROCHLORIDE [Concomitant]
     Active Substance: OXYCODONE HYDROCHLORIDE
     Dates: start: 20200225
  8. PROTONIX [Concomitant]
     Active Substance: PANTOPRAZOLE SODIUM
     Dates: start: 20200225
  9. TYLENOL [Concomitant]
     Active Substance: ACETAMINOPHEN
     Dates: start: 20200225
  10. PREDNISONE [Concomitant]
     Active Substance: PREDNISONE
     Dates: start: 20200512
  11. LEVOFALACIN [Concomitant]
     Dosage: 750.0MG UNKNOWN
     Dates: start: 20200731
  12. VITAMIN C [Concomitant]
     Active Substance: ASCORBIC ACID
     Dates: start: 20200313

REACTIONS (3)
  - Choking [Recovering/Resolving]
  - Pulmonary pain [Recovering/Resolving]
  - Pyrexia [Recovering/Resolving]

NARRATIVE: CASE EVENT DATE: 20200723
